FAERS Safety Report 24980787 (Version 1)
Quarter: 2025Q1

REPORT INFORMATION
  Report Type: Spontaneous
  Country: US (occurrence: None)
  Receive Date: 20250214
  Receipt Date: 20250214
  Transmission Date: 20250409
  Serious: Yes (Life-Threatening, Disabling)
  Sender: FDA-CTU
  Company Number: None

PATIENT
  Age: 80 Year
  Sex: Male
  Weight: 89.36 kg

DRUGS (1)
  1. DONANEMAB [Suspect]
     Active Substance: DONANEMAB

REACTIONS (17)
  - Pruritus [None]
  - Soft tissue disorder [None]
  - Pain [None]
  - Headache [None]
  - Ear pain [None]
  - Ophthalmic migraine [None]
  - Decreased appetite [None]
  - Food allergy [None]
  - Multiple allergies [None]
  - Fatigue [None]
  - Muscle disorder [None]
  - Hypersensitivity [None]
  - Prostatic specific antigen increased [None]
  - Infusion related reaction [None]
  - Ageusia [None]
  - Muscular weakness [None]
  - Personality change [None]

NARRATIVE: CASE EVENT DATE: 20230817
